FAERS Safety Report 6384678-1 (Version None)
Quarter: 2009Q4

REPORT INFORMATION
  Report Type: 
  Country: None (occurrence: None)
  Receive Date: 20091001
  Receipt Date: 20090821
  Transmission Date: 20100525
  Serious: No
  Sender: FDA-Public Use
  Company Number: US-TYCO HEALTHCARE/MALLINCKRODT-T200901584

PATIENT
  Sex: Female

DRUGS (5)
  1. TUSSICAPS EXTENDED-RELEASE [Suspect]
     Indication: SINUSITIS
     Dosage: UNK
     Dates: start: 20090820, end: 20090820
  2. TUSSICAPS EXTENDED-RELEASE [Suspect]
     Indication: BRONCHITIS
  3. AZITHROMYCIN [Concomitant]
     Dosage: 250 MG, UNK
  4. HYZAAR                             /01284801/ [Concomitant]
     Indication: HYPERTENSION
  5. PROCARDIA XL [Concomitant]
     Indication: HYPERTENSION

REACTIONS (2)
  - ABNORMAL BEHAVIOUR [None]
  - NAUSEA [None]
